FAERS Safety Report 9999352 (Version 1)
Quarter: 2014Q1

REPORT INFORMATION
  Report Type: Spontaneous
  Country: EG (occurrence: None)
  Receive Date: 20140310
  Receipt Date: 20140310
  Transmission Date: 20141002
  Serious: Yes (Hospitalization)
  Sender: FDA-Public Use
  Company Number: 2217823

PATIENT
  Age: 9 Year
  Sex: Female

DRUGS (3)
  1. (CYTARABINE) [Suspect]
     Indication: ACUTE MYELOID LEUKAEMIA
  2. ANTHRACYCLINES [Suspect]
     Indication: ACUTE MYELOID LEUKAEMIA
  3. (CORTICOSTEROIDS) [Suspect]
     Indication: ACUTE MYELOID LEUKAEMIA

REACTIONS (1)
  - Osteonecrosis [None]
